FAERS Safety Report 6727007-3 (Version None)
Quarter: 2010Q2

REPORT INFORMATION
  Report Type: 
  Country: None (occurrence: None)
  Receive Date: 20100517
  Receipt Date: 20100505
  Transmission Date: 20101027
  Serious: Yes (Hospitalization)
  Sender: FDA-Public Use
  Company Number: PT-WYE-G05995210

PATIENT
  Sex: Female
  Weight: 60 kg

DRUGS (1)
  1. PIPERACILLIN AND TAZOBACTAM [Suspect]
     Indication: ABSCESS
     Dosage: 1 UNIT DOSE
     Route: 042
     Dates: start: 20100320, end: 20100322

REACTIONS (6)
  - EYELID OEDEMA [None]
  - HYPOTENSION [None]
  - PARAESTHESIA [None]
  - PYREXIA [None]
  - RASH GENERALISED [None]
  - VISION BLURRED [None]
